FAERS Safety Report 4999566-2 (Version None)
Quarter: 2006Q2

REPORT INFORMATION
  Report Type: 
  Country: None (occurrence: None)
  Receive Date: 20060511
  Receipt Date: 20060207
  Transmission Date: 20061013
  Serious: Yes (Hospitalization, Disabling)
  Sender: FDA-Public Use
  Company Number: US-MERCK-0602USA02224

PATIENT
  Age: 65 Year
  Sex: Male
  Weight: 98 kg

DRUGS (7)
  1. VIOXX [Suspect]
     Indication: BACK PAIN
     Route: 048
     Dates: start: 19980101, end: 20010118
  2. TYLENOL (CAPLET) [Concomitant]
     Route: 065
  3. TYLENOL (CAPLET) [Concomitant]
     Route: 065
  4. SOMA [Concomitant]
     Route: 065
  5. VITAMINS (UNSPECIFIED) [Concomitant]
     Route: 065
  6. [THERAPY UNSPECIFIED] [Concomitant]
     Route: 065
  7. NEURONTIN [Concomitant]
     Route: 048

REACTIONS (24)
  - ACUTE MYOCARDIAL INFARCTION [None]
  - ATELECTASIS [None]
  - CARDIOMEGALY [None]
  - CHEST DISCOMFORT [None]
  - CORONARY ARTERY DISEASE [None]
  - DIASTOLIC DYSFUNCTION [None]
  - DILATATION ATRIAL [None]
  - DILATATION VENTRICULAR [None]
  - EJECTION FRACTION DECREASED [None]
  - EYE INJURY [None]
  - GRAVITATIONAL OEDEMA [None]
  - HYPOKINESIA [None]
  - HYPOTENSION [None]
  - HYPOXIA [None]
  - INCISION SITE COMPLICATION [None]
  - INTERVERTEBRAL DISC DISORDER [None]
  - KNEE ARTHROPLASTY [None]
  - MITRAL VALVE INCOMPETENCE [None]
  - SCAN MYOCARDIAL PERFUSION ABNORMAL [None]
  - TRICUSPID VALVE INCOMPETENCE [None]
  - VENTRICULAR DYSFUNCTION [None]
  - VENTRICULAR EXTRASYSTOLES [None]
  - VENTRICULAR FAILURE [None]
  - VERTIGO [None]
